FAERS Safety Report 24186810 (Version 1)
Quarter: 2024Q3

REPORT INFORMATION
  Report Type: Spontaneous
  Country: EG (occurrence: EG)
  Receive Date: 20240808
  Receipt Date: 20240808
  Transmission Date: 20241017
  Serious: Yes (Other)
  Sender: AMGEN
  Company Number: EG-PFIZER INC-PV202400101514

PATIENT
  Age: 40 Year
  Sex: Female

DRUGS (7)
  1. ENBREL [Suspect]
     Active Substance: BENZYL ALCOHOL\ETANERCEPT
     Indication: Product used for unknown indication
     Dosage: 50 MG, WEEKLY
     Route: 058
     Dates: start: 20231204
  2. MINERALS\VITAMINS [Concomitant]
     Active Substance: MINERALS\VITAMINS
     Dosage: UNK
     Route: 065
  3. DEXAGLOBE [Concomitant]
     Dosage: 1 DF (ONE APM ONCE)
     Route: 065
  4. DEVAROL [Concomitant]
     Dosage: 1 AMP EVERY 2 WEEKS
     Route: 065
  5. DICLOFENAC [Concomitant]
     Active Substance: DICLOFENAC
     Dosage: 1 DF, 2X/DAY
     Route: 065
  6. METHOTREXATE [Concomitant]
     Active Substance: METHOTREXATE
     Dosage: 4 DF (4X2.5 MG), WEEKLY
     Route: 065
  7. Solupred [Concomitant]
     Dosage: 5 MG, 2X/DAY
     Route: 065

REACTIONS (1)
  - Haemorrhoids [Unknown]
